FAERS Safety Report 8953000 (Version 1)
Quarter: 2012Q4

REPORT INFORMATION
  Report Type: 
  Country: US (occurrence: US)
  Receive Date: 20121205
  Receipt Date: 20121205
  Transmission Date: 20130627
  Serious: Yes (Other)
  Sender: FDA-Public Use
  Company Number: PHEH2012US023826

PATIENT
  Sex: Male
  Weight: 95.24 kg

DRUGS (12)
  1. ZOMETA [Suspect]
     Indication: MULTIPLE MYELOMA
  2. VITAMIN D [Concomitant]
  3. REVLIMID [Concomitant]
  4. PRILOSEC [Concomitant]
  5. MOEXIPRIL HCL AND HYDROCHLOROTHIAZIDE [Concomitant]
  6. KLOR-CON [Concomitant]
  7. GABAPENTIN [Concomitant]
  8. ALLOPURINOL [Concomitant]
  9. ASA [Concomitant]
  10. BACTRIM [Concomitant]
  11. CITALOPRAM [Concomitant]
  12. DECADRON [Concomitant]

REACTIONS (1)
  - Osteomyelitis [Unknown]
